FAERS Safety Report 18744088 (Version 2)
Quarter: 2021Q3

REPORT INFORMATION
  Report Type: Spontaneous
  Country: US (occurrence: US)
  Receive Date: 20210115
  Receipt Date: 20210907
  Transmission Date: 20211014
  Serious: Yes (Other)
  Sender: FDA-Public Use
  Company Number: US-AUROBINDO-AUR-APL-2021-000970

PATIENT
  Age: 68 Year
  Sex: Female

DRUGS (5)
  1. AMIODARONE HYDROCHLORIDE. [Suspect]
     Active Substance: AMIODARONE HYDROCHLORIDE
     Indication: ATRIAL FIBRILLATION
     Dosage: 150 MILLIGRAM, LOADING DOSE OVER 10 MIN
     Route: 042
  2. AMIODARONE HYDROCHLORIDE. [Interacting]
     Active Substance: AMIODARONE HYDROCHLORIDE
     Dosage: CONTINUOUS INFUSION [450 MG/250 ML) STARTED AT 1 MG/MIN FOR 6 HOURS FOLLOWED 0.5 MG/MIN
     Route: 042
  3. REMDESIVIR. [Interacting]
     Active Substance: REMDESIVIR
     Dosage: 100 MILLIGRAM, ONCE A DAY, MAINTENANCE ON DAY 8
     Route: 042
  4. REMDESIVIR. [Interacting]
     Active Substance: REMDESIVIR
     Indication: COVID-19 PNEUMONIA
     Dosage: 200 MILLIGRAM, LOADING DOSE
     Route: 042
  5. NITROGLYCERIN. [Suspect]
     Active Substance: NITROGLYCERIN
     Indication: BLOOD PRESSURE SYSTOLIC
     Dosage: UNK
     Route: 065

REACTIONS (2)
  - Drug interaction [Unknown]
  - Acute hepatic failure [Recovered/Resolved]
